FAERS Safety Report 13206666 (Version 1)
Quarter: 2017Q1

REPORT INFORMATION
  Report Type: Spontaneous
  Country: US (occurrence: US)
  Receive Date: 20170209
  Receipt Date: 20170209
  Transmission Date: 20170428
  Serious: No
  Sender: FDA-Public Use
  Company Number: US-SA-2016SA218942

PATIENT
  Sex: Female

DRUGS (15)
  1. PRALUENT [Suspect]
     Active Substance: ALIROCUMAB
     Route: 065
  2. CLOPIDOGREL [Concomitant]
     Active Substance: CLOPIDOGREL BISULFATE
  3. CARVEDILOL. [Concomitant]
     Active Substance: CARVEDILOL
  4. ESTRACE [Concomitant]
     Active Substance: ESTRADIOL
  5. FLUCONAZOLE. [Concomitant]
     Active Substance: FLUCONAZOLE
  6. ENOXAPARIN [Concomitant]
     Active Substance: ENOXAPARIN
  7. KETOCONAZOLE. [Concomitant]
     Active Substance: KETOCONAZOLE
  8. WARFARIN [Concomitant]
     Active Substance: WARFARIN
  9. ZETIA [Concomitant]
     Active Substance: EZETIMIBE
  10. ALIROCUMAB PREFILLED PEN [Concomitant]
     Active Substance: ALIROCUMAB
  11. CLONAZEPAM. [Concomitant]
     Active Substance: CLONAZEPAM
  12. CHANTIX [Concomitant]
     Active Substance: VARENICLINE TARTRATE
  13. HYDROXYZINE HYDROCHLORIDE. [Concomitant]
     Active Substance: HYDROXYZINE HYDROCHLORIDE
  14. CLOBETASOL [Concomitant]
     Active Substance: CLOBETASOL
  15. CRESTOR [Concomitant]
     Active Substance: ROSUVASTATIN CALCIUM

REACTIONS (2)
  - Headache [Recovered/Resolved]
  - Bronchitis [Recovered/Resolved]
